FAERS Safety Report 10175095 (Version 3)
Quarter: 2014Q3

REPORT INFORMATION
  Report Type: Spontaneous
  Country: DE (occurrence: JP)
  Receive Date: 20140515
  Receipt Date: 20140710
  Transmission Date: 20150326
  Serious: Yes (Other)
  Sender: FDA-Public Use
  Company Number: JP-FRI-1000067306

PATIENT
  Age: 87 Year
  Sex: Male
  Weight: 42 kg

DRUGS (16)
  1. LAC B [Concomitant]
     Active Substance: BIFIDOBACTERIUM SPP.
     Dates: start: 20130410
  2. LORATADINE. [Concomitant]
     Active Substance: LORATADINE
     Dates: start: 20130327
  3. SELARA [Concomitant]
     Active Substance: EPLERENONE
     Dates: start: 20130408
  4. ASPARA POTASSIUM [Concomitant]
     Active Substance: POTASSIUM ASPARTATE
     Dates: start: 20130408
  5. PRAVASTATIN [Concomitant]
     Active Substance: PRAVASTATIN\PRAVASTATIN SODIUM
  6. TERBINAFINE [Concomitant]
     Active Substance: TERBINAFINE
     Dates: start: 20130424
  7. PANTOSIN [Concomitant]
     Active Substance: PANTETHINE
     Dates: start: 20130424
  8. MEMANTINE [Suspect]
     Active Substance: MEMANTINE
     Dosage: 10 MG
     Route: 048
     Dates: start: 20131204, end: 20140107
  9. MEMANTINE [Suspect]
     Active Substance: MEMANTINE
     Dosage: 15 MG
     Route: 048
     Dates: start: 20140108, end: 20140211
  10. MEMANTINE [Suspect]
     Active Substance: MEMANTINE
     Indication: DEMENTIA ALZHEIMER^S TYPE
     Dosage: 20 MG
     Route: 048
     Dates: start: 20140519, end: 20140521
  11. YOKUKAN-SAN [Concomitant]
     Active Substance: UNSPECIFIED INGREDIENT
  12. TWINLINE [Concomitant]
  13. MEMANTINE [Suspect]
     Active Substance: MEMANTINE
     Indication: DEMENTIA ALZHEIMER^S TYPE
     Dosage: 5 MG
     Route: 048
     Dates: start: 20131127, end: 20131203
  14. MEMANTINE [Suspect]
     Active Substance: MEMANTINE
     Indication: DEMENTIA ALZHEIMER^S TYPE
     Dosage: 20 MG
     Route: 048
     Dates: start: 20140212, end: 20140507
  15. URIEF [Concomitant]
     Active Substance: SILODOSIN
     Dates: start: 20130326
  16. MAGMITT [Concomitant]
     Active Substance: MAGNESIUM OXIDE
     Dates: start: 20130424

REACTIONS (1)
  - Loss of consciousness [Recovered/Resolved]

NARRATIVE: CASE EVENT DATE: 20140419
